FAERS Safety Report 9633333 (Version 1)
Quarter: 2013Q4

REPORT INFORMATION
  Report Type: Spontaneous
  Country: US (occurrence: US)
  Receive Date: 20131021
  Receipt Date: 20131021
  Transmission Date: 20140711
  Serious: No
  Sender: FDA-Public Use
  Company Number: US-B.I. PHARMACEUTICALS,INC./RIDGEFIELD-2013-BI-31872BP

PATIENT
  Age: 81 Year
  Sex: Male

DRUGS (2)
  1. TRADJENTA [Suspect]
     Indication: TYPE 2 DIABETES MELLITUS
     Dosage: 5 MG
     Route: 048
     Dates: start: 201308, end: 201310
  2. METFORMIN [Concomitant]
     Dosage: 2000 MG
     Route: 048

REACTIONS (3)
  - Fatigue [Unknown]
  - Confusional state [Unknown]
  - Thinking abnormal [Unknown]
